FAERS Safety Report 5644046-4 (Version None)
Quarter: 2008Q1

REPORT INFORMATION
  Report Type: 
  Country: None (occurrence: None)
  Receive Date: 20080131
  Receipt Date: 20070927
  Transmission Date: 20080703
  Serious: Yes (Other)
  Sender: FDA-Public Use
  Company Number: 163-21880-07091571

PATIENT
  Age: 76 Year
  Sex: Female
  Weight: 107.0489 kg

DRUGS (9)
  1. REVLIMID [Suspect]
     Indication: MULTIPLE MYELOMA
     Dosage: 25 MG, USE AS DIRECTED BY PHYSICIAN, ORAL
     Route: 048
     Dates: start: 20061108
  2. ZOMETA [Concomitant]
  3. TRAMADOL HCL [Concomitant]
  4. DILAUDID [Concomitant]
  5. LISINOPRIL [Concomitant]
  6. GLIPIZIDE [Concomitant]
  7. NEURONTIN [Concomitant]
  8. HYDROCHLOROTHIAZIDE [Concomitant]
  9. ASPIRIN [Concomitant]

REACTIONS (4)
  - DYSPHONIA [None]
  - FATIGUE [None]
  - LOWER LIMB FRACTURE [None]
  - PAIN [None]
